FAERS Safety Report 21373662 (Version 1)
Quarter: 2022Q3

REPORT INFORMATION
  Report Type: Report from Study
  Country: US (occurrence: US)
  Receive Date: 20220926
  Receipt Date: 20220926
  Transmission Date: 20221027
  Serious: Yes (Other)
  Sender: FDA-Public Use
  Company Number: US-BAUSCHBL-2022BNL000565

PATIENT
  Sex: Female

DRUGS (1)
  1. MURO 128 [Suspect]
     Active Substance: SODIUM CHLORIDE
     Indication: Product used for unknown indication
     Route: 047

REACTIONS (4)
  - Malignant melanoma [Not Recovered/Not Resolved]
  - Breast cancer [Not Recovered/Not Resolved]
  - Blindness [Not Recovered/Not Resolved]
  - Hospice care [Unknown]
